FAERS Safety Report 7935821-1 (Version None)
Quarter: 2011Q4

REPORT INFORMATION
  Report Type: 
  Country: None (occurrence: None)
  Receive Date: 20111123
  Receipt Date: 20111115
  Transmission Date: 20120403
  Serious: Yes (Death, Life-Threatening, Hospitalization, Disabling)
  Sender: FDA-Public Use
  Company Number: GB-CELGENEUS-167-C5013-11012975

PATIENT
  Sex: Male
  Weight: 86.4 kg

DRUGS (14)
  1. PREDNISONE TAB [Suspect]
     Dosage: 10 MILLIGRAM
     Route: 065
     Dates: start: 20101210
  2. LENALIDOMIDE [Suspect]
     Indication: PROSTATE CANCER
     Route: 048
     Dates: start: 20101001
  3. DOCETAXEL [Suspect]
     Dosage: 120 MILLIGRAM
     Route: 065
     Dates: start: 20101210
  4. FERROUS FUMARATE [Concomitant]
     Route: 048
     Dates: end: 20110205
  5. PREDNISONE TAB [Suspect]
     Indication: PROSTATE CANCER
     Dosage: 10 MILLIGRAM
     Route: 065
     Dates: start: 20101001
  6. OMEPRAZOLE [Concomitant]
     Dosage: 40 MILLIGRAM
     Route: 048
     Dates: end: 20110205
  7. PREDNISONE TAB [Suspect]
     Dosage: 10 MILLIGRAM
     Route: 065
     Dates: start: 20110125
  8. DOCETAXEL [Suspect]
     Dosage: 120 MILLIGRAM
     Route: 065
     Dates: start: 20110125
  9. INDORAMIN [Concomitant]
     Indication: HYPERTENSION
     Route: 048
     Dates: end: 20110205
  10. METOCLOPRAMIDE [Concomitant]
     Indication: ANTIEMETIC SUPPORTIVE CARE
     Route: 048
     Dates: end: 20110204
  11. DOCETAXEL [Suspect]
     Indication: PROSTATE CANCER
     Route: 065
     Dates: start: 20101001
  12. INFUMORPH [Concomitant]
     Route: 048
     Dates: end: 20110205
  13. ENOXAPARIN [Concomitant]
     Indication: THROMBOSIS PROPHYLAXIS
     Route: 065
  14. LENALIDOMIDE [Suspect]
     Dates: start: 20101210, end: 20101210

REACTIONS (4)
  - DYSPNOEA [None]
  - PULMONARY EMBOLISM [None]
  - PROSTATE CANCER METASTATIC [None]
  - LOWER RESPIRATORY TRACT INFECTION [None]
